FAERS Safety Report 4367400-X (Version None)
Quarter: 2004Q2

REPORT INFORMATION
  Report Type: 
  Country: None (occurrence: None)
  Receive Date: 20040601
  Receipt Date: 20040225
  Transmission Date: 20050107
  Serious: Yes (Other)
  Sender: FDA-Public Use
  Company Number: ES-BRISTOL-MYERS SQUIBB COMPANY-12517587

PATIENT
  Age: 61 Year
  Sex: Male

DRUGS (4)
  1. ATAZANAVIR [Suspect]
     Indication: HIV INFECTION
     Dates: start: 20040109, end: 20040203
  2. RITONAVIR [Concomitant]
     Dates: start: 20040101
  3. LAMIVUDINE [Concomitant]
     Dates: start: 20040101
  4. TENOFOVIR [Concomitant]
     Dates: start: 20040101

REACTIONS (2)
  - CEREBRAL TOXOPLASMOSIS [None]
  - HEMIPLEGIA [None]
